FAERS Safety Report 6535285-9 (Version None)
Quarter: 2010Q1

REPORT INFORMATION
  Report Type: 
  Country: None (occurrence: None)
  Receive Date: 20100113
  Receipt Date: 20100105
  Transmission Date: 20100710
  Serious: Yes (Death)
  Sender: FDA-Public Use
  Company Number: CA-ROCHE-677972

PATIENT
  Sex: Male

DRUGS (11)
  1. PEG-INTERFERON ALFA 2A (RO 25-8310) [Suspect]
     Indication: HEPATITIS C
     Route: 058
     Dates: start: 20090301
  2. RIBAVIRIN [Suspect]
     Indication: HEPATITIS C
     Dosage: TAKEN DAILY
     Route: 048
     Dates: start: 20090301
  3. MYCOPHENOLATE MOFETIL [Suspect]
     Indication: DRUG USE FOR UNKNOWN INDICATION
     Route: 065
  4. COLCHICINE [Concomitant]
  5. FUROSEMIDE [Concomitant]
  6. CALCIUM [Concomitant]
  7. VITAMINE D [Concomitant]
  8. NORVASC [Concomitant]
  9. DOCUSATE [Concomitant]
  10. SULFAMETHOXAZOLE [Concomitant]
  11. OMEPRAZOLE [Concomitant]

REACTIONS (1)
  - DEATH [None]
